FAERS Safety Report 7515544-3 (Version None)
Quarter: 2011Q2

REPORT INFORMATION
  Report Type: 
  Country: None (occurrence: None)
  Receive Date: 20110601
  Receipt Date: 20100709
  Transmission Date: 20111010
  Serious: No
  Sender: FDA-Public Use
  Company Number: US-PFIZER INC-2010085788

PATIENT
  Sex: Female

DRUGS (5)
  1. LOTREL [Concomitant]
     Indication: HYPERTENSION
     Dosage: 10/20 MG, DAILY
     Route: 048
  2. CLONIDINE [Concomitant]
     Indication: HYPERTENSION
     Dosage: 0.2 MG, 2X/DAY
     Route: 048
  3. CHANTIX [Suspect]
     Dosage: 0.5 MG, DAILY
     Route: 048
     Dates: start: 20100101
  4. CHANTIX [Suspect]
     Dosage: 1 MG, UNK
     Dates: start: 20100101
  5. VALSARTAN [Concomitant]
     Indication: HYPERTENSION
     Dosage: 320 MG, DAILY
     Route: 048

REACTIONS (2)
  - NIGHTMARE [None]
  - ABNORMAL DREAMS [None]
